FAERS Safety Report 9030935 (Version 1)
Quarter: 2013Q1

REPORT INFORMATION
  Report Type: Report from Study
  Country: ZA (occurrence: ZA)
  Receive Date: 20130123
  Receipt Date: 20130123
  Transmission Date: 20140127
  Serious: Yes (Death, Hospitalization)
  Sender: FDA-Public Use
  Company Number: ZA-ROCHE-1182280

PATIENT
  Sex: Female

DRUGS (3)
  1. MIRCERA [Suspect]
     Indication: PRODUCT USED FOR UNKNOWN INDICATION
     Route: 065
     Dates: start: 20101006
  2. MIRCERA [Suspect]
     Route: 065
     Dates: start: 20120304
  3. MIRCERA [Suspect]
     Route: 065
     Dates: start: 20120823

REACTIONS (1)
  - Pneumonia [Fatal]
